FAERS Safety Report 9347293 (Version 3)
Quarter: 2014Q1

REPORT INFORMATION
  Report Type: Report from Study
  Country: DE (occurrence: DE)
  Receive Date: 20130613
  Receipt Date: 20140117
  Transmission Date: 20141002
  Serious: Yes (Other)
  Sender: FDA-Public Use
  Company Number: DE-JNJFOC-20130601408

PATIENT
  Age: 68 Year
  Sex: Female
  Weight: 75 kg

DRUGS (4)
  1. STELARA [Suspect]
     Indication: PSORIASIS
  2. STELARA [Suspect]
     Indication: PSORIASIS
     Dosage: APPROXIMATELY 8 INJECTIONS RECEIVED
     Dates: start: 20110103
  3. AMLODIPINE [Concomitant]
     Route: 048
  4. ATACAND PLUS [Concomitant]
     Route: 048

REACTIONS (1)
  - Basal cell carcinoma [Recovered/Resolved]
